FAERS Safety Report 14928934 (Version 1)
Quarter: 2018Q2

REPORT INFORMATION
  Report Type: Spontaneous
  Country: GB (occurrence: GB)
  Receive Date: 20180523
  Receipt Date: 20180523
  Transmission Date: 20180711
  Serious: Yes (Other)
  Sender: FDA-Public Use
  Company Number: GB-MYLANLABS-2018M1033340

PATIENT
  Age: 55 Year
  Sex: Male

DRUGS (1)
  1. TIMOLOL. [Suspect]
     Active Substance: TIMOLOL
     Indication: OCULAR HYPERTENSION
     Dosage: UNK UNK, BID, TWICE A DAY TO BOTH EYES
     Route: 061

REACTIONS (2)
  - Dupuytren^s contracture [Not Recovered/Not Resolved]
  - Peyronie^s disease [Not Recovered/Not Resolved]
